FAERS Safety Report 20369742 (Version 1)
Quarter: 2022Q1

REPORT INFORMATION
  Report Type: Spontaneous
  Country: US (occurrence: US)
  Receive Date: 20220124
  Receipt Date: 20220124
  Transmission Date: 20220423
  Serious: No
  Sender: FDA-Public Use
  Company Number: US-ORGANON-O2201USA001456

PATIENT
  Age: 29 Year
  Sex: Male

DRUGS (3)
  1. ZETIA [Suspect]
     Active Substance: EZETIMIBE
     Indication: Hypercholesterolaemia
     Dosage: 10 MILLIGRAM, QD
     Route: 048
  2. COLESEVELAM [Suspect]
     Active Substance: COLESEVELAM
     Indication: Hypercholesterolaemia
     Dosage: 3.75 GRAM, QD
  3. NIACIN [Suspect]
     Active Substance: NIACIN
     Indication: Hypercholesterolaemia
     Dosage: 500 MILLIGRAM, BID

REACTIONS (1)
  - Drug ineffective [Unknown]
